FAERS Safety Report 6240063-4 (Version None)
Quarter: 2009Q2

REPORT INFORMATION
  Report Type: 
  Country: None (occurrence: None)
  Receive Date: 20090623
  Receipt Date: 20090618
  Transmission Date: 20091009
  Serious: Yes (Hospitalization)
  Sender: FDA-Public Use
  Company Number: KR-ROCHE-635012

PATIENT
  Sex: Male
  Weight: 62 kg

DRUGS (4)
  1. CAPECITABINE [Suspect]
     Route: 048
     Dates: start: 20090320
  2. CAPECITABINE [Suspect]
     Dosage: 4TH CYCLE; REPORTED FORM: FILM COATED TABLET.LAST DOSE PRIOR TO SAE: 24 MAY 2009
     Route: 048
     Dates: start: 20090520, end: 20090525
  3. BEVACIZUMAB [Suspect]
     Route: 042
     Dates: start: 20090320
  4. BEVACIZUMAB [Suspect]
     Dosage: 4TH CYCLE; REPORTED FORM: VIAL.
     Route: 042
     Dates: start: 20090520

REACTIONS (1)
  - INTESTINAL OBSTRUCTION [None]
